FAERS Safety Report 9829862 (Version 2)
Quarter: 2014Q1

REPORT INFORMATION
  Report Type: Report from Study
  Country: CN (occurrence: CN)
  Receive Date: 20140120
  Receipt Date: 20140120
  Transmission Date: 20141002
  Serious: Yes (Other)
  Sender: FDA-Public Use
  Company Number: CN-ROCHE-1314167

PATIENT
  Sex: 0

DRUGS (5)
  1. CAPECITABINE [Suspect]
     Indication: BREAST CANCER METASTATIC
     Route: 048
  2. CAPECITABINE [Suspect]
     Route: 048
  3. GEMCITABINE [Suspect]
     Indication: BREAST CANCER METASTATIC
     Route: 041
  4. DOCETAXEL [Suspect]
     Indication: BREAST CANCER METASTATIC
     Route: 065
  5. PACLITAXEL [Suspect]
     Indication: BREAST CANCER METASTATIC
     Route: 065

REACTIONS (2)
  - Bone marrow failure [Unknown]
  - Gastrointestinal toxicity [Unknown]
